FAERS Safety Report 16333062 (Version 10)
Quarter: 2021Q4

REPORT INFORMATION
  Report Type: Spontaneous
  Country: CN (occurrence: CN)
  Receive Date: 20190520
  Receipt Date: 20211108
  Transmission Date: 20220303
  Serious: Yes (Death, Life-Threatening)
  Sender: FDA-Public Use
  Company Number: CN-CELGENE-CHN-20190506410

PATIENT
  Age: 78 Year
  Sex: Male
  Weight: 68.5 kg

DRUGS (74)
  1. AZACITIDINE [Suspect]
     Active Substance: AZACITIDINE
     Indication: Acute myeloid leukaemia
     Dosage: 75 MILLIGRAM/SQ. METER
     Route: 058
  2. VENETOCLAX [Concomitant]
     Active Substance: VENETOCLAX
     Indication: Acute myeloid leukaemia
     Route: 048
     Dates: start: 20190501, end: 20190501
  3. VENETOCLAX [Concomitant]
     Active Substance: VENETOCLAX
     Route: 048
     Dates: start: 20190502, end: 20190502
  4. VENETOCLAX [Concomitant]
     Active Substance: VENETOCLAX
     Route: 048
     Dates: start: 20190503, end: 20190503
  5. VENETOCLAX [Concomitant]
     Active Substance: VENETOCLAX
     Route: 048
     Dates: start: 20190509, end: 20190509
  6. AMINOCAPROIC ACID AND SODIUM CHLORIDE [Concomitant]
     Indication: Haemorrhage prophylaxis
     Dosage: 8 GRAM
     Route: 041
  7. METOPROLOL TARTRATE [Concomitant]
     Active Substance: METOPROLOL TARTRATE
     Indication: Coronary artery disease
     Dosage: 25 MILLIGRAM
     Route: 048
     Dates: start: 20190424, end: 20190509
  8. METOPROLOL TARTRATE [Concomitant]
     Active Substance: METOPROLOL TARTRATE
     Indication: Cardiac valve disease
  9. METOPROLOL TARTRATE [Concomitant]
     Active Substance: METOPROLOL TARTRATE
     Indication: Congestive cardiomyopathy
  10. FUROSEMIDE [Concomitant]
     Active Substance: FUROSEMIDE
     Indication: Coronary artery disease
     Dosage: 20 MILLIGRAM
     Route: 048
     Dates: start: 20190424, end: 20210509
  11. FUROSEMIDE [Concomitant]
     Active Substance: FUROSEMIDE
     Indication: Cardiac valve disease
     Dosage: 20 MILLIGRAM
     Route: 041
     Dates: start: 20190424, end: 20190425
  12. FUROSEMIDE [Concomitant]
     Active Substance: FUROSEMIDE
     Indication: Congestive cardiomyopathy
  13. FUROSEMIDE [Concomitant]
     Active Substance: FUROSEMIDE
     Indication: Prophylaxis
  14. SPIRONOLACTONE [Concomitant]
     Active Substance: SPIRONOLACTONE
     Indication: Coronary artery disease
     Dosage: 20 MILLIGRAM
     Route: 048
     Dates: start: 20190424, end: 20190509
  15. SPIRONOLACTONE [Concomitant]
     Active Substance: SPIRONOLACTONE
     Indication: Cardiac valve disease
  16. SPIRONOLACTONE [Concomitant]
     Active Substance: SPIRONOLACTONE
     Indication: Congestive cardiomyopathy
  17. DEXTROSE [Concomitant]
     Active Substance: DEXTROSE
     Indication: Hydrotherapy
     Dosage: 200 MILLILITER
     Route: 041
     Dates: start: 20210509, end: 20210509
  18. DEXTROSE [Concomitant]
     Active Substance: DEXTROSE
     Indication: Prophylaxis
     Dosage: 800 MILLILITER
     Route: 041
     Dates: start: 20210509, end: 20210509
  19. DEXTROSE [Concomitant]
     Active Substance: DEXTROSE
     Indication: Decreased appetite
     Dosage: 400 MILLILITER
     Route: 041
     Dates: start: 20190505, end: 20190508
  20. DEXTROSE [Concomitant]
     Active Substance: DEXTROSE
     Indication: Blood glucose abnormal
     Dosage: 100 MILLILITER
     Route: 041
     Dates: start: 20190425, end: 20190428
  21. DEXTROSE [Concomitant]
     Active Substance: DEXTROSE
     Dosage: 100 MILLILITER
     Route: 041
     Dates: start: 20190425, end: 20190428
  22. DEXTROSE [Concomitant]
     Active Substance: DEXTROSE
     Dosage: 100 MILLILITER
     Route: 041
     Dates: start: 20190505, end: 20190508
  23. INSULIN NOS [Concomitant]
     Active Substance: INSULIN NOS
     Indication: Hydrotherapy
     Dosage: 30 IU (INTERNATIONAL UNIT)
     Route: 041
     Dates: start: 20190425, end: 20190428
  24. INSULIN NOS [Concomitant]
     Active Substance: INSULIN NOS
     Indication: Prophylaxis
     Dosage: 16 IU (INTERNATIONAL UNIT)
     Route: 041
     Dates: start: 20190508, end: 20190508
  25. INSULIN NOS [Concomitant]
     Active Substance: INSULIN NOS
     Indication: Prophylaxis
     Dosage: 16 IU (INTERNATIONAL UNIT)
     Route: 041
     Dates: start: 20190505, end: 20190507
  26. INSULIN NOS [Concomitant]
     Active Substance: INSULIN NOS
     Dosage: 32 IU (INTERNATIONAL UNIT)
     Route: 041
     Dates: start: 20190509, end: 20190509
  27. POTASSIUM CHLORIDE [Concomitant]
     Active Substance: POTASSIUM CHLORIDE
     Indication: Hydrotherapy
     Dosage: 1.5 GRAM
     Route: 041
     Dates: start: 20190425, end: 20190428
  28. POTASSIUM CHLORIDE [Concomitant]
     Active Substance: POTASSIUM CHLORIDE
     Indication: Prophylaxis
     Dosage: 1.5 GRAM
     Route: 041
     Dates: start: 20190505, end: 20190507
  29. POTASSIUM CHLORIDE [Concomitant]
     Active Substance: POTASSIUM CHLORIDE
     Indication: Hypokalaemia
     Dosage: 1.5 GRAM
     Route: 041
     Dates: start: 20190508, end: 20190508
  30. POTASSIUM CHLORIDE [Concomitant]
     Active Substance: POTASSIUM CHLORIDE
     Dosage: 3 GRAM
     Route: 041
     Dates: start: 20190509, end: 20190509
  31. SODIUM CARBONATE [Concomitant]
     Active Substance: SODIUM CARBONATE
     Indication: Prophylaxis
     Dosage: 100 MILLILITER
     Route: 041
     Dates: start: 20190502, end: 20190502
  32. ALLOPURINOL [Concomitant]
     Active Substance: ALLOPURINOL
     Indication: Prophylaxis
     Dosage: .1 GRAM
     Route: 048
     Dates: start: 20190428, end: 20190509
  33. SODIUM CHLORIDE [Concomitant]
     Active Substance: SODIUM CHLORIDE
     Indication: Prophylaxis
     Route: 041
     Dates: start: 20190502, end: 20190502
  34. SODIUM CHLORIDE [Concomitant]
     Active Substance: SODIUM CHLORIDE
     Route: 041
     Dates: start: 20190426, end: 20190426
  35. SODIUM CHLORIDE [Concomitant]
     Active Substance: SODIUM CHLORIDE
     Route: 041
     Dates: start: 20190430, end: 20190430
  36. SODIUM CHLORIDE [Concomitant]
     Active Substance: SODIUM CHLORIDE
     Route: 041
     Dates: start: 20190505, end: 20190505
  37. CASPOFUNGIN ACETATE [Concomitant]
     Active Substance: CASPOFUNGIN ACETATE
     Indication: Anti-infective therapy
     Dosage: 70 MILLILITER
     Route: 041
     Dates: start: 20190509, end: 20190509
  38. CASPOFUNGIN ACETATE [Concomitant]
     Active Substance: CASPOFUNGIN ACETATE
     Indication: Infection
  39. CASPOFUNGIN ACETATE [Concomitant]
     Active Substance: CASPOFUNGIN ACETATE
     Indication: Pneumonia
  40. CERNEVIT [Concomitant]
     Active Substance: VITAMINS
     Indication: Decreased appetite
     Dosage: 1 IU (INTERNATIONAL UNIT)
     Route: 041
     Dates: start: 20190507, end: 20190508
  41. CERNEVIT [Concomitant]
     Active Substance: VITAMINS
     Dosage: 2 IU (INTERNATIONAL UNIT)
     Route: 041
     Dates: start: 20190509, end: 20190509
  42. HYDROXYUREA [Concomitant]
     Active Substance: HYDROXYUREA
     Indication: Leukocytosis
     Dosage: 1 GRAM
     Route: 048
     Dates: start: 20190417, end: 20190419
  43. HYDROXYUREA [Concomitant]
     Active Substance: HYDROXYUREA
     Dosage: 1.5 GRAM
     Route: 048
     Dates: start: 20190419, end: 20190421
  44. HYDROXYUREA [Concomitant]
     Active Substance: HYDROXYUREA
     Dosage: 4 GRAM
     Route: 048
     Dates: start: 20190509, end: 20190509
  45. Lienal polypeptide [Concomitant]
     Indication: Malignant transformation
     Dosage: 6 MILLILITER
     Route: 041
     Dates: start: 20190503
  46. METHYLPREDNISOLONE SODIUM SUCCINATE [Concomitant]
     Active Substance: METHYLPREDNISOLONE SODIUM SUCCINATE
     Indication: Pyrexia
     Dosage: 20 MILLIGRAM
     Route: 041
     Dates: start: 20190425, end: 20190425
  47. METHYLPREDNISOLONE SODIUM SUCCINATE [Concomitant]
     Active Substance: METHYLPREDNISOLONE SODIUM SUCCINATE
     Indication: Prophylaxis
     Dosage: 20 MILLIGRAM
     Route: 041
     Dates: start: 20190502, end: 20190502
  48. METHYLPREDNISOLONE SODIUM SUCCINATE [Concomitant]
     Active Substance: METHYLPREDNISOLONE SODIUM SUCCINATE
     Dosage: 40 MILLIGRAM
     Route: 041
     Dates: start: 20190504, end: 20190505
  49. METHYLPREDNISOLONE SODIUM SUCCINATE [Concomitant]
     Active Substance: METHYLPREDNISOLONE SODIUM SUCCINATE
     Dosage: 20 MILLIGRAM
     Route: 041
     Dates: start: 20190505, end: 20190505
  50. METHYLPREDNISOLONE SODIUM SUCCINATE [Concomitant]
     Active Substance: METHYLPREDNISOLONE SODIUM SUCCINATE
     Dosage: 40 MILLIGRAM
     Route: 041
     Dates: start: 20190509, end: 20190509
  51. METHYLPREDNISOLONE SODIUM SUCCINATE [Concomitant]
     Active Substance: METHYLPREDNISOLONE SODIUM SUCCINATE
     Dosage: 80 MILLIGRAM
     Route: 041
     Dates: start: 20190509, end: 20190509
  52. NAPROXEN SODIUM [Concomitant]
     Active Substance: NAPROXEN SODIUM
     Indication: Pyrexia
     Dosage: .275 GRAM
     Route: 041
     Dates: start: 20190419, end: 20190420
  53. NAPROXEN SODIUM [Concomitant]
     Active Substance: NAPROXEN SODIUM
     Indication: Antipyresis
     Dosage: .275 GRAM
     Route: 041
     Dates: start: 20190423, end: 20190423
  54. NAPROXEN SODIUM [Concomitant]
     Active Substance: NAPROXEN SODIUM
     Dosage: .275 GRAM
     Route: 041
     Dates: start: 20190504, end: 20190504
  55. NAPROXEN SODIUM [Concomitant]
     Active Substance: NAPROXEN SODIUM
     Dosage: 20 GRAM
     Route: 041
     Dates: start: 20190507, end: 20190507
  56. NAPROXEN SODIUM [Concomitant]
     Active Substance: NAPROXEN SODIUM
     Dosage: .275 GRAM
     Route: 041
     Dates: start: 20190509, end: 20190509
  57. PIPERACILLIN AND TAZOBACTAM [Concomitant]
     Active Substance: PIPERACILLIN SODIUM\TAZOBACTAM SODIUM
     Indication: Anti-infective therapy
     Dosage: 13.5 GRAM
     Route: 041
     Dates: start: 20190416, end: 20190418
  58. PIPERACILLIN AND TAZOBACTAM [Concomitant]
     Active Substance: PIPERACILLIN SODIUM\TAZOBACTAM SODIUM
     Indication: Prophylaxis
     Dosage: 5 GRAM
     Route: 041
     Dates: start: 20190503, end: 20190509
  59. PIPERACILLIN AND TAZOBACTAM [Concomitant]
     Active Substance: PIPERACILLIN SODIUM\TAZOBACTAM SODIUM
     Indication: Pneumonia
  60. TIGECYCLINE [Concomitant]
     Active Substance: TIGECYCLINE
     Indication: Anti-infective therapy
     Dosage: 100 MILLIGRAM
     Route: 041
     Dates: start: 20190426
  61. TIGECYCLINE [Concomitant]
     Active Substance: TIGECYCLINE
     Indication: Prophylaxis
     Dosage: 100 MILLIGRAM
     Route: 041
     Dates: start: 20190427, end: 20190509
  62. TIGECYCLINE [Concomitant]
     Active Substance: TIGECYCLINE
     Indication: Pneumonia
  63. VORICONAZOLE [Concomitant]
     Active Substance: VORICONAZOLE
     Indication: Anti-infective therapy
     Dosage: 400 MILLIGRAM
     Route: 048
     Dates: start: 20190426, end: 20190509
  64. VORICONAZOLE [Concomitant]
     Active Substance: VORICONAZOLE
     Indication: Infection
  65. VORICONAZOLE [Concomitant]
     Active Substance: VORICONAZOLE
     Indication: Pneumonia
  66. EPINEPHRINE [Concomitant]
     Active Substance: EPINEPHRINE
     Indication: Resuscitation
     Route: 065
  67. PERINDOPRIL [Concomitant]
     Active Substance: PERINDOPRIL
     Indication: Cardiac valve disease
     Dosage: 4 MILLIGRAM
     Route: 048
     Dates: start: 20190424, end: 20190429
  68. PERINDOPRIL [Concomitant]
     Active Substance: PERINDOPRIL
     Indication: Congestive cardiomyopathy
     Dosage: 4 MILLIGRAM
     Route: 048
     Dates: start: 20190430, end: 20190509
  69. PERINDOPRIL [Concomitant]
     Active Substance: PERINDOPRIL
     Indication: Coronary artery disease
  70. CEFOPERAZONE SODIUM\SULBACTAM SODIUM [Concomitant]
     Active Substance: CEFOPERAZONE SODIUM\SULBACTAM SODIUM
     Indication: Pneumonia
     Dosage: 9 MILLIGRAM
     Route: 041
     Dates: start: 20190426, end: 20190427
  71. CEFOPERAZONE SODIUM\SULBACTAM SODIUM [Concomitant]
     Active Substance: CEFOPERAZONE SODIUM\SULBACTAM SODIUM
     Dosage: 8 MILLIGRAM
     Route: 041
     Dates: start: 20190428, end: 20190502
  72. CALCIUM GLUCONATE [Concomitant]
     Active Substance: CALCIUM GLUCONATE
     Indication: Decreased appetite
     Route: 041
     Dates: start: 20190508, end: 20190508
  73. Albumin Prepared For Human Plasma (Albumin Human) [Concomitant]
     Indication: Cardiac failure congestive
     Dosage: 10 GRAM
     Route: 041
     Dates: start: 20190426, end: 20190426
  74. Albumin Prepared For Human Plasma (Albumin Human) [Concomitant]
     Indication: Oedema

REACTIONS (2)
  - Sudden cardiac death [Fatal]
  - Metabolic acidosis [Fatal]

NARRATIVE: CASE EVENT DATE: 20190510
